FAERS Safety Report 25012052 (Version 1)
Quarter: 2025Q1

REPORT INFORMATION
  Report Type: Spontaneous
  Country: CA (occurrence: CA)
  Receive Date: 20250226
  Receipt Date: 20250226
  Transmission Date: 20250409
  Serious: Yes (Death, Other)
  Sender: BRISTOL-MYERS SQUIBB COMPANY
  Company Number: CA-BRISTOL-MYERS SQUIBB COMPANY-2025-028863

PATIENT
  Age: 43 Year
  Sex: Female

DRUGS (286)
  1. ORENCIA [Suspect]
     Active Substance: ABATACEPT
     Indication: Rheumatoid arthritis
     Route: 042
  2. ORENCIA [Suspect]
     Active Substance: ABATACEPT
     Route: 041
  3. ORENCIA [Suspect]
     Active Substance: ABATACEPT
     Indication: Rheumatoid arthritis
     Route: 058
  4. ORENCIA [Suspect]
     Active Substance: ABATACEPT
     Route: 058
  5. ORENCIA [Suspect]
     Active Substance: ABATACEPT
     Route: 058
  6. TRIAMCINOLONE ACETONIDE [Suspect]
     Active Substance: TRIAMCINOLONE ACETONIDE
     Indication: Product used for unknown indication
  7. ACETAMINOPHEN [Concomitant]
     Active Substance: ACETAMINOPHEN
     Indication: Product used for unknown indication
  8. ACETAMINOPHEN [Concomitant]
     Active Substance: ACETAMINOPHEN
     Indication: Rheumatoid arthritis
  9. ACETAMINOPHEN [Concomitant]
     Active Substance: ACETAMINOPHEN
  10. ACTEMRA [Concomitant]
     Active Substance: TOCILIZUMAB
     Indication: Rheumatoid arthritis
  11. ACTEMRA [Concomitant]
     Active Substance: TOCILIZUMAB
     Route: 042
  12. ACTEMRA [Concomitant]
     Active Substance: TOCILIZUMAB
     Route: 042
  13. ACTEMRA [Concomitant]
     Active Substance: TOCILIZUMAB
  14. ACTEMRA [Concomitant]
     Active Substance: TOCILIZUMAB
     Route: 042
  15. ACTEMRA [Concomitant]
     Active Substance: TOCILIZUMAB
     Route: 048
  16. ACTEMRA [Concomitant]
     Active Substance: TOCILIZUMAB
     Route: 061
  17. ACTEMRA [Concomitant]
     Active Substance: TOCILIZUMAB
  18. ACTEMRA [Concomitant]
     Active Substance: TOCILIZUMAB
     Route: 042
  19. ACTEMRA [Concomitant]
     Active Substance: TOCILIZUMAB
  20. ACTEMRA [Concomitant]
     Active Substance: TOCILIZUMAB
     Route: 058
  21. ALENDRONATE SODIUM [Concomitant]
     Active Substance: ALENDRONATE SODIUM
     Indication: Rheumatoid arthritis
     Route: 048
  22. ALENDRONATE SODIUM [Concomitant]
     Active Substance: ALENDRONATE SODIUM
     Route: 048
  23. ALENDRONATE SODIUM [Concomitant]
     Active Substance: ALENDRONATE SODIUM
     Route: 048
  24. ALENDRONATE SODIUM [Concomitant]
     Active Substance: ALENDRONATE SODIUM
  25. ALENDRONIC ACID [Concomitant]
     Active Substance: ALENDRONIC ACID
     Indication: Rheumatoid arthritis
  26. PREDNISONE [Concomitant]
     Active Substance: PREDNISONE
     Indication: Rheumatoid arthritis
  27. PREDNISONE [Concomitant]
     Active Substance: PREDNISONE
  28. ARAVA [Concomitant]
     Active Substance: LEFLUNOMIDE
     Indication: Rheumatoid arthritis
     Route: 048
  29. ARAVA [Concomitant]
     Active Substance: LEFLUNOMIDE
     Route: 048
  30. ARAVA [Concomitant]
     Active Substance: LEFLUNOMIDE
  31. ARAVA [Concomitant]
     Active Substance: LEFLUNOMIDE
     Route: 048
  32. ARAVA [Concomitant]
     Active Substance: LEFLUNOMIDE
     Route: 048
  33. CALCIUM CARBONATE [Concomitant]
     Active Substance: CALCIUM CARBONATE
     Indication: Product used for unknown indication
  34. CALCIUM CARBONATE [Concomitant]
     Active Substance: CALCIUM CARBONATE
  35. CALCIUM GLUBIONATE [Concomitant]
     Active Substance: CALCIUM GLUBIONATE
     Indication: Product used for unknown indication
     Route: 048
  36. CELECOXIB [Concomitant]
     Active Substance: CELECOXIB
     Indication: Product used for unknown indication
     Route: 048
  37. CERTOLIZUMAB PEGOL [Concomitant]
     Active Substance: CERTOLIZUMAB PEGOL
     Indication: Rheumatoid arthritis
     Route: 058
  38. CETIRIZINE HYDROCHLORIDE [Concomitant]
     Active Substance: CETIRIZINE HYDROCHLORIDE
     Indication: Rheumatoid arthritis
     Route: 016
  39. CETIRIZINE HYDROCHLORIDE [Concomitant]
     Active Substance: CETIRIZINE HYDROCHLORIDE
     Route: 005
  40. CETIRIZINE HYDROCHLORIDE [Concomitant]
     Active Substance: CETIRIZINE HYDROCHLORIDE
  41. CETIRIZINE HYDROCHLORIDE AND PSEUDOEPHEDRINE HYDROCHLORIDE [Concomitant]
     Active Substance: CETIRIZINE HYDROCHLORIDE\PSEUDOEPHEDRINE HYDROCHLORIDE
     Indication: Rheumatoid arthritis
  42. CETIRIZINE HYDROCHLORIDE AND PSEUDOEPHEDRINE HYDROCHLORIDE [Concomitant]
     Active Substance: CETIRIZINE HYDROCHLORIDE\PSEUDOEPHEDRINE HYDROCHLORIDE
  43. CETIRIZINE HYDROCHLORIDE AND PSEUDOEPHEDRINE HYDROCHLORIDE [Concomitant]
     Active Substance: CETIRIZINE HYDROCHLORIDE\PSEUDOEPHEDRINE HYDROCHLORIDE
  44. CETIRIZINE HYDROCHLORIDE AND PSEUDOEPHEDRINE HYDROCHLORIDE [Concomitant]
     Active Substance: CETIRIZINE HYDROCHLORIDE\PSEUDOEPHEDRINE HYDROCHLORIDE
     Route: 048
  45. CETIRIZINE HYDROCHLORIDE AND PSEUDOEPHEDRINE HYDROCHLORIDE [Concomitant]
     Active Substance: CETIRIZINE HYDROCHLORIDE\PSEUDOEPHEDRINE HYDROCHLORIDE
  46. CETIRIZINE HYDROCHLORIDE AND PSEUDOEPHEDRINE HYDROCHLORIDE [Concomitant]
     Active Substance: CETIRIZINE HYDROCHLORIDE\PSEUDOEPHEDRINE HYDROCHLORIDE
  47. CETIRIZINE HYDROCHLORIDE AND PSEUDOEPHEDRINE HYDROCHLORIDE [Concomitant]
     Active Substance: CETIRIZINE HYDROCHLORIDE\PSEUDOEPHEDRINE HYDROCHLORIDE
     Route: 048
  48. CETIRIZINE HYDROCHLORIDE AND PSEUDOEPHEDRINE HYDROCHLORIDE [Concomitant]
     Active Substance: CETIRIZINE HYDROCHLORIDE\PSEUDOEPHEDRINE HYDROCHLORIDE
  49. CETIRIZINE HYDROCHLORIDE AND PSEUDOEPHEDRINE HYDROCHLORIDE [Concomitant]
     Active Substance: CETIRIZINE HYDROCHLORIDE\PSEUDOEPHEDRINE HYDROCHLORIDE
  50. CETIRIZINE HYDROCHLORIDE AND PSEUDOEPHEDRINE HYDROCHLORIDE [Concomitant]
     Active Substance: CETIRIZINE HYDROCHLORIDE\PSEUDOEPHEDRINE HYDROCHLORIDE
  51. CETIRIZINE HYDROCHLORIDE AND PSEUDOEPHEDRINE HYDROCHLORIDE [Concomitant]
     Active Substance: CETIRIZINE HYDROCHLORIDE\PSEUDOEPHEDRINE HYDROCHLORIDE
  52. CETIRIZINE HYDROCHLORIDE AND PSEUDOEPHEDRINE HYDROCHLORIDE [Concomitant]
     Active Substance: CETIRIZINE HYDROCHLORIDE\PSEUDOEPHEDRINE HYDROCHLORIDE
  53. CETIRIZINE HYDROCHLORIDE AND PSEUDOEPHEDRINE HYDROCHLORIDE [Concomitant]
     Active Substance: CETIRIZINE HYDROCHLORIDE\PSEUDOEPHEDRINE HYDROCHLORIDE
  54. CHLORHEXIDINE [Concomitant]
     Active Substance: CHLORHEXIDINE
     Indication: Product used for unknown indication
  55. CHLORHEXIDINE [Concomitant]
     Active Substance: CHLORHEXIDINE
     Route: 061
  56. CIMZIA [Concomitant]
     Active Substance: CERTOLIZUMAB PEGOL
     Indication: Rheumatoid arthritis
     Route: 058
  57. CIMZIA [Concomitant]
     Active Substance: CERTOLIZUMAB PEGOL
     Indication: Psoriasis
     Route: 058
  58. CIMZIA [Concomitant]
     Active Substance: CERTOLIZUMAB PEGOL
     Route: 058
  59. CIMZIA [Concomitant]
     Active Substance: CERTOLIZUMAB PEGOL
     Route: 058
  60. CIMZIA [Concomitant]
     Active Substance: CERTOLIZUMAB PEGOL
  61. CIMZIA [Concomitant]
     Active Substance: CERTOLIZUMAB PEGOL
     Route: 058
  62. CORTISONE (HYDROCORTISONE) [Concomitant]
     Active Substance: HYDROCORTISONE
     Indication: Rheumatoid arthritis
     Route: 003
  63. CORTISONE (HYDROCORTISONE) [Concomitant]
     Active Substance: HYDROCORTISONE
     Route: 048
  64. CORTISONE (HYDROCORTISONE) [Concomitant]
     Active Substance: HYDROCORTISONE
     Route: 058
  65. CORTISONE (HYDROCORTISONE) [Concomitant]
     Active Substance: HYDROCORTISONE
  66. CORTISONE ACETATE [Concomitant]
     Active Substance: CORTISONE ACETATE
     Indication: Rheumatoid arthritis
     Route: 048
  67. CORTISONE ACETATE [Concomitant]
     Active Substance: CORTISONE ACETATE
  68. CORTISONE ACETATE [Concomitant]
     Active Substance: CORTISONE ACETATE
     Route: 061
  69. CORTISONE ACETATE [Concomitant]
     Active Substance: CORTISONE ACETATE
  70. CORTISONE ACETATE [Concomitant]
     Active Substance: CORTISONE ACETATE
  71. CORTISONE ACETATE [Concomitant]
     Active Substance: CORTISONE ACETATE
  72. COSENTYX [Concomitant]
     Active Substance: SECUKINUMAB
     Indication: Rheumatoid arthritis
     Route: 042
  73. COSENTYX [Concomitant]
     Active Substance: SECUKINUMAB
     Indication: Psoriatic arthropathy
  74. DESOXIMETASONE [Concomitant]
     Active Substance: DESOXIMETASONE
     Indication: Rheumatoid arthritis
     Route: 003
  75. DESOXIMETASONE [Concomitant]
     Active Substance: DESOXIMETASONE
     Route: 003
  76. DESOXIMETASONE [Concomitant]
     Active Substance: DESOXIMETASONE
     Route: 003
  77. DESOXIMETASONE [Concomitant]
     Active Substance: DESOXIMETASONE
     Route: 058
  78. DESOXIMETASONE [Concomitant]
     Active Substance: DESOXIMETASONE
     Route: 048
  79. DESOXIMETASONE [Concomitant]
     Active Substance: DESOXIMETASONE
     Route: 058
  80. DESOXIMETASONE [Concomitant]
     Active Substance: DESOXIMETASONE
     Route: 048
  81. DESOXIMETASONE [Concomitant]
     Active Substance: DESOXIMETASONE
     Route: 048
  82. DESOXIMETASONE [Concomitant]
     Active Substance: DESOXIMETASONE
     Route: 048
  83. DESOXIMETASONE [Concomitant]
     Active Substance: DESOXIMETASONE
  84. DESOXIMETASONE [Concomitant]
     Active Substance: DESOXIMETASONE
     Route: 058
  85. DESOXIMETASONE [Concomitant]
     Active Substance: DESOXIMETASONE
     Route: 003
  86. DESOXIMETASONE [Concomitant]
     Active Substance: DESOXIMETASONE
     Route: 003
  87. DESOXIMETASONE [Concomitant]
     Active Substance: DESOXIMETASONE
     Route: 048
  88. DESOXIMETASONE [Concomitant]
     Active Substance: DESOXIMETASONE
  89. DICLOFENAC DIETHYLAMINE [Concomitant]
     Active Substance: DICLOFENAC DIETHYLAMINE
     Indication: Product used for unknown indication
  90. DICLOFENAC DIETHYLAMINE [Concomitant]
     Active Substance: DICLOFENAC DIETHYLAMINE
  91. DICLOFENAC SODIUM [Concomitant]
     Active Substance: DICLOFENAC SODIUM
     Indication: Product used for unknown indication
  92. DOXYCYCLINE [Concomitant]
     Active Substance: DOXYCYCLINE
     Indication: Product used for unknown indication
  93. ENBREL [Concomitant]
     Active Substance: ETANERCEPT
     Indication: Rheumatoid arthritis
     Route: 058
  94. ENBREL [Concomitant]
     Active Substance: ETANERCEPT
     Indication: Psoriatic arthropathy
     Route: 058
  95. ENBREL [Concomitant]
     Active Substance: ETANERCEPT
     Route: 058
  96. ENBREL [Concomitant]
     Active Substance: ETANERCEPT
     Route: 058
  97. ENBREL [Concomitant]
     Active Substance: ETANERCEPT
     Route: 058
  98. ENBREL [Concomitant]
     Active Substance: ETANERCEPT
  99. ERELZI [Concomitant]
     Active Substance: ETANERCEPT-SZZS
     Indication: Rheumatoid arthritis
     Route: 058
  100. ERELZI [Concomitant]
     Active Substance: ETANERCEPT-SZZS
  101. ERELZI [Concomitant]
     Active Substance: ETANERCEPT-SZZS
  102. ERELZI [Concomitant]
     Active Substance: ETANERCEPT-SZZS
     Route: 058
  103. ERELZI [Concomitant]
     Active Substance: ETANERCEPT-SZZS
  104. ERELZI [Concomitant]
     Active Substance: ETANERCEPT-SZZS
  105. ERELZI [Concomitant]
     Active Substance: ETANERCEPT-SZZS
  106. ERELZI [Concomitant]
     Active Substance: ETANERCEPT-SZZS
  107. FLUMETHASONE PIVALATE [Concomitant]
     Active Substance: FLUMETHASONE PIVALATE
     Indication: Rheumatoid arthritis
     Route: 058
  108. FLUMETHASONE PIVALATE [Concomitant]
     Active Substance: FLUMETHASONE PIVALATE
     Route: 003
  109. FOLIC ACID [Concomitant]
     Active Substance: FOLIC ACID
     Indication: Rheumatoid arthritis
  110. FOLIC ACID [Concomitant]
     Active Substance: FOLIC ACID
     Route: 058
  111. FOLIC ACID [Concomitant]
     Active Substance: FOLIC ACID
  112. FOLIC ACID [Concomitant]
     Active Substance: FOLIC ACID
     Route: 048
  113. FOLIC ACID [Concomitant]
     Active Substance: FOLIC ACID
  114. FOLIC ACID [Concomitant]
     Active Substance: FOLIC ACID
  115. FOLIC ACID [Concomitant]
     Active Substance: FOLIC ACID
  116. FOLIC ACID [Concomitant]
     Active Substance: FOLIC ACID
  117. FOLIC ACID [Concomitant]
     Active Substance: FOLIC ACID
  118. FOLIC ACID [Concomitant]
     Active Substance: FOLIC ACID
     Route: 048
  119. FOLIC ACID [Concomitant]
     Active Substance: FOLIC ACID
  120. FOLIC ACID [Concomitant]
     Active Substance: FOLIC ACID
  121. FOLIC ACID [Concomitant]
     Active Substance: FOLIC ACID
  122. FOSAMAX [Concomitant]
     Active Substance: ALENDRONATE SODIUM
     Indication: Rheumatoid arthritis
     Route: 048
  123. FOSAMAX [Concomitant]
     Active Substance: ALENDRONATE SODIUM
     Route: 048
  124. FOSAMAX [Concomitant]
     Active Substance: ALENDRONATE SODIUM
  125. GOLIMUMAB [Concomitant]
     Active Substance: GOLIMUMAB
     Indication: Rheumatoid arthritis
     Route: 058
  126. GOLIMUMAB [Concomitant]
     Active Substance: GOLIMUMAB
  127. HUMIRA [Concomitant]
     Active Substance: ADALIMUMAB
     Indication: Rheumatoid arthritis
     Route: 057
  128. HUMIRA [Concomitant]
     Active Substance: ADALIMUMAB
     Indication: Psoriatic arthropathy
     Route: 058
  129. HUMIRA [Concomitant]
     Active Substance: ADALIMUMAB
     Route: 057
  130. HUMIRA [Concomitant]
     Active Substance: ADALIMUMAB
     Route: 058
  131. HUMIRA [Concomitant]
     Active Substance: ADALIMUMAB
     Route: 058
  132. HYDROXYCHLOROQUINE [Concomitant]
     Active Substance: HYDROXYCHLOROQUINE
     Indication: Rheumatoid arthritis
  133. HYDROXYCHLOROQUINE [Concomitant]
     Active Substance: HYDROXYCHLOROQUINE
  134. HYDROXYCHLOROQUINE [Concomitant]
     Active Substance: HYDROXYCHLOROQUINE
  135. HYDROXYCHLOROQUINE [Concomitant]
     Active Substance: HYDROXYCHLOROQUINE
     Route: 048
  136. HYDROXYCHLOROQUINE [Concomitant]
     Active Substance: HYDROXYCHLOROQUINE
  137. HYDROXYCHLOROQUINE [Concomitant]
     Active Substance: HYDROXYCHLOROQUINE
  138. HYDROXYCHLOROQUINE [Concomitant]
     Active Substance: HYDROXYCHLOROQUINE
     Route: 048
  139. HYDROXYCHLOROQUINE [Concomitant]
     Active Substance: HYDROXYCHLOROQUINE
  140. HYDROXYCHLOROQUINE [Concomitant]
     Active Substance: HYDROXYCHLOROQUINE
     Route: 066
  141. HYDROXYCHLOROQUINE SULFATE [Concomitant]
     Active Substance: HYDROXYCHLOROQUINE SULFATE
     Indication: Rheumatoid arthritis
  142. HYDROXYCHLOROQUINE SULFATE [Concomitant]
     Active Substance: HYDROXYCHLOROQUINE SULFATE
     Indication: Product used for unknown indication
  143. HYDROXYCHLOROQUINE SULFATE [Concomitant]
     Active Substance: HYDROXYCHLOROQUINE SULFATE
  144. HYDROXYCHLOROQUINE SULFATE [Concomitant]
     Active Substance: HYDROXYCHLOROQUINE SULFATE
     Route: 048
  145. HYDROXYCHLOROQUINE SULFATE [Concomitant]
     Active Substance: HYDROXYCHLOROQUINE SULFATE
  146. HYDROXYCHLOROQUINE SULFATE [Concomitant]
     Active Substance: HYDROXYCHLOROQUINE SULFATE
  147. HYDROXYCHLOROQUINE SULFATE [Concomitant]
     Active Substance: HYDROXYCHLOROQUINE SULFATE
     Route: 066
  148. HYRIMOZ [Concomitant]
     Active Substance: ADALIMUMAB-ADAZ
     Indication: Rheumatoid arthritis
     Route: 058
  149. HYRIMOZ [Concomitant]
     Active Substance: ADALIMUMAB-ADAZ
     Route: 058
  150. HYRIMOZ [Concomitant]
     Active Substance: ADALIMUMAB-ADAZ
     Route: 058
  151. HYRIMOZ [Concomitant]
     Active Substance: ADALIMUMAB-ADAZ
     Route: 058
  152. INFLIXIMAB [Concomitant]
     Active Substance: INFLIXIMAB
     Indication: Rheumatoid arthritis
     Route: 042
  153. INFLIXIMAB [Concomitant]
     Active Substance: INFLIXIMAB
     Route: 042
  154. INFLIXIMAB [Concomitant]
     Active Substance: INFLIXIMAB
  155. INFLIXIMAB [Concomitant]
     Active Substance: INFLIXIMAB
  156. INFLIXIMAB [Concomitant]
     Active Substance: INFLIXIMAB
  157. INFLIXIMAB [Concomitant]
     Active Substance: INFLIXIMAB
  158. KEVZARA [Concomitant]
     Active Substance: SARILUMAB
     Indication: Rheumatoid arthritis
  159. METHOTREXATE [Concomitant]
     Active Substance: METHOTREXATE
     Dosage: INTRA- ARTERIAL
     Route: 058
  160. METHOTREXATE [Concomitant]
     Active Substance: METHOTREXATE
  161. METHOTREXATE [Concomitant]
     Active Substance: METHOTREXATE
  162. METHOTREXATE [Concomitant]
     Active Substance: METHOTREXATE
     Route: 048
  163. METHOTREXATE [Concomitant]
     Active Substance: METHOTREXATE
     Route: 013
  164. METHOTREXATE [Concomitant]
     Active Substance: METHOTREXATE
     Route: 030
  165. METHOTREXATE [Concomitant]
     Active Substance: METHOTREXATE
     Route: 048
  166. METHOTREXATE [Concomitant]
     Active Substance: METHOTREXATE
     Route: 058
  167. METHOTREXATE [Concomitant]
     Active Substance: METHOTREXATE
     Route: 048
  168. METHOTREXATE [Concomitant]
     Active Substance: METHOTREXATE
  169. METHOTREXATE [Concomitant]
     Active Substance: METHOTREXATE
     Route: 016
  170. METHOTREXATE [Concomitant]
     Active Substance: METHOTREXATE
     Route: 048
  171. NAPROXEN SODIUM [Concomitant]
     Active Substance: NAPROXEN SODIUM
     Indication: Rheumatoid arthritis
  172. NAPROXEN SODIUM [Concomitant]
     Active Substance: NAPROXEN SODIUM
  173. NAPROXEN SODIUM [Concomitant]
     Active Substance: NAPROXEN SODIUM
  174. NAPROXEN SODIUM [Concomitant]
     Active Substance: NAPROXEN SODIUM
  175. OTEZLA [Concomitant]
     Active Substance: APREMILAST
     Indication: Product used for unknown indication
     Route: 048
  176. OXYCODONE [Concomitant]
     Active Substance: OXYCODONE
     Indication: Product used for unknown indication
  177. OXYCODONE TEREPHTHALATE [Concomitant]
     Active Substance: OXYCODONE TEREPHTHALATE
     Indication: Product used for unknown indication
  178. PERIOGARD [Concomitant]
     Active Substance: CHLORHEXIDINE GLUCONATE
     Indication: Product used for unknown indication
  179. PERIOGARD [Concomitant]
     Active Substance: CHLORHEXIDINE GLUCONATE
  180. PERIOGARD [Concomitant]
     Active Substance: CHLORHEXIDINE GLUCONATE
  181. PHTHALYLSULFATHIAZOLE [Concomitant]
     Active Substance: PHTHALYLSULFATHIAZOLE
     Indication: Product used for unknown indication
  182. PHTHALYLSULFATHIAZOLE [Concomitant]
     Active Substance: PHTHALYLSULFATHIAZOLE
     Indication: Rheumatoid arthritis
     Route: 048
  183. PHTHALYLSULFATHIAZOLE [Concomitant]
     Active Substance: PHTHALYLSULFATHIAZOLE
     Route: 048
  184. PHTHALYLSULFATHIAZOLE [Concomitant]
     Active Substance: PHTHALYLSULFATHIAZOLE
     Route: 048
  185. PHTHALYLSULFATHIAZOLE [Concomitant]
     Active Substance: PHTHALYLSULFATHIAZOLE
     Route: 016
  186. PHTHALYLSULFATHIAZOLE [Concomitant]
     Active Substance: PHTHALYLSULFATHIAZOLE
     Route: 048
  187. PHTHALYLSULFATHIAZOLE [Concomitant]
     Active Substance: PHTHALYLSULFATHIAZOLE
     Route: 048
  188. PHTHALYLSULFATHIAZOLE [Concomitant]
     Active Substance: PHTHALYLSULFATHIAZOLE
  189. PHTHALYLSULFATHIAZOLE [Concomitant]
     Active Substance: PHTHALYLSULFATHIAZOLE
  190. PHTHALYLSULFATHIAZOLE [Concomitant]
     Active Substance: PHTHALYLSULFATHIAZOLE
     Route: 058
  191. HYDROXYCHLOROQUINE DIPHOSPHATE [Concomitant]
     Active Substance: HYDROXYCHLOROQUINE DIPHOSPHATE
     Indication: Rheumatoid arthritis
  192. PREDNISONE [Concomitant]
     Active Substance: PREDNISONE
     Indication: Rheumatoid arthritis
     Route: 048
  193. PREDNISONE [Concomitant]
     Active Substance: PREDNISONE
     Indication: Condition aggravated
     Route: 048
  194. PREDNISONE [Concomitant]
     Active Substance: PREDNISONE
     Route: 048
  195. PREDNISONE [Concomitant]
     Active Substance: PREDNISONE
  196. PREDNISONE [Concomitant]
     Active Substance: PREDNISONE
  197. PREDNISONE [Concomitant]
     Active Substance: PREDNISONE
  198. PREDNISONE [Concomitant]
     Active Substance: PREDNISONE
  199. PREDNISONE [Concomitant]
     Active Substance: PREDNISONE
     Route: 048
  200. PREDNISONE [Concomitant]
     Active Substance: PREDNISONE
  201. PREDNISONE [Concomitant]
     Active Substance: PREDNISONE
  202. PREDNISONE [Concomitant]
     Active Substance: PREDNISONE
  203. PREDNISONE [Concomitant]
     Active Substance: PREDNISONE
  204. PSEUDOEPHEDRINE HYDROCHLORIDE [Concomitant]
     Active Substance: PSEUDOEPHEDRINE HYDROCHLORIDE
     Indication: Rheumatoid arthritis
  205. PSEUDOEPHEDRINE HYDROCHLORIDE [Concomitant]
     Active Substance: PSEUDOEPHEDRINE HYDROCHLORIDE
  206. PSEUDOEPHEDRINE HYDROCHLORIDE [Concomitant]
     Active Substance: PSEUDOEPHEDRINE HYDROCHLORIDE
  207. PSEUDOEPHEDRINE HYDROCHLORIDE [Concomitant]
     Active Substance: PSEUDOEPHEDRINE HYDROCHLORIDE
  208. PSEUDOEPHEDRINE HYDROCHLORIDE [Concomitant]
     Active Substance: PSEUDOEPHEDRINE HYDROCHLORIDE
  209. CETIRIZINE HYDROCHLORIDE [Concomitant]
     Active Substance: CETIRIZINE HYDROCHLORIDE
     Indication: Rheumatoid arthritis
  210. CETIRIZINE HYDROCHLORIDE [Concomitant]
     Active Substance: CETIRIZINE HYDROCHLORIDE
     Route: 048
  211. CETIRIZINE HYDROCHLORIDE [Concomitant]
     Active Substance: CETIRIZINE HYDROCHLORIDE
     Route: 016
  212. REMICADE [Concomitant]
     Active Substance: INFLIXIMAB
     Indication: Rheumatoid arthritis
     Route: 042
  213. RITUXIMAB [Concomitant]
     Active Substance: RITUXIMAB
     Indication: Rheumatoid arthritis
     Route: 058
  214. RITUXIMAB [Concomitant]
     Active Substance: RITUXIMAB
     Route: 042
  215. RITUXIMAB [Concomitant]
     Active Substance: RITUXIMAB
     Route: 042
  216. RITUXIMAB [Concomitant]
     Active Substance: RITUXIMAB
     Route: 042
  217. RITUXIMAB [Concomitant]
     Active Substance: RITUXIMAB
     Route: 042
  218. APREMILAST [Concomitant]
     Active Substance: APREMILAST
     Indication: Product used for unknown indication
  219. APREMILAST [Concomitant]
     Active Substance: APREMILAST
  220. HYDROCORTISONE [Concomitant]
     Active Substance: HYDROCORTISONE
     Indication: Rheumatoid arthritis
     Route: 058
  221. LEFLUNOMIDE [Concomitant]
     Active Substance: LEFLUNOMIDE
     Indication: Rheumatoid arthritis
  222. LEFLUNOMIDE [Concomitant]
     Active Substance: LEFLUNOMIDE
  223. LEFLUNOMIDE [Concomitant]
     Active Substance: LEFLUNOMIDE
  224. LEFLUNOMIDE [Concomitant]
     Active Substance: LEFLUNOMIDE
     Route: 048
  225. MYCOPHENOLATE MOFETIL [Concomitant]
     Active Substance: MYCOPHENOLATE MOFETIL
     Indication: Product used for unknown indication
  226. SIMPONI [Concomitant]
     Active Substance: GOLIMUMAB
     Indication: Rheumatoid arthritis
     Route: 058
  227. SIMPONI [Concomitant]
     Active Substance: GOLIMUMAB
     Route: 058
  228. SIMPONI [Concomitant]
     Active Substance: GOLIMUMAB
     Route: 042
  229. SIMPONI [Concomitant]
     Active Substance: GOLIMUMAB
  230. SIMPONI [Concomitant]
     Active Substance: GOLIMUMAB
     Route: 058
  231. STELARA [Concomitant]
     Active Substance: USTEKINUMAB
     Indication: Psoriasis
     Route: 042
  232. STELARA [Concomitant]
     Active Substance: USTEKINUMAB
     Route: 042
  233. STELARA [Concomitant]
     Active Substance: USTEKINUMAB
     Route: 058
  234. SULFAMETHOXAZOLE [Concomitant]
     Active Substance: SULFAMETHOXAZOLE
     Indication: Product used for unknown indication
  235. SULFAMETHOXAZOLE [Concomitant]
     Active Substance: SULFAMETHOXAZOLE
     Route: 061
  236. SULFASALAZINE [Concomitant]
     Active Substance: SULFASALAZINE
     Indication: Rheumatoid arthritis
     Route: 048
  237. SULFASALAZINE [Concomitant]
     Active Substance: SULFASALAZINE
  238. SULFASALAZINE [Concomitant]
     Active Substance: SULFASALAZINE
  239. SULFASALAZINE [Concomitant]
     Active Substance: SULFASALAZINE
  240. SULFASALAZINE [Concomitant]
     Active Substance: SULFASALAZINE
  241. SULFASALAZINE [Concomitant]
     Active Substance: SULFASALAZINE
  242. SULFASALAZINE [Concomitant]
     Active Substance: SULFASALAZINE
  243. SULFASALAZINE [Concomitant]
     Active Substance: SULFASALAZINE
  244. SULFASALAZINE [Concomitant]
     Active Substance: SULFASALAZINE
  245. SULFASALAZINE [Concomitant]
     Active Substance: SULFASALAZINE
  246. SULFASALAZINE [Concomitant]
     Active Substance: SULFASALAZINE
  247. SULFASALAZINE [Concomitant]
     Active Substance: SULFASALAZINE
     Route: 048
  248. SULFASALAZINE [Concomitant]
     Active Substance: SULFASALAZINE
     Route: 048
  249. SULFASALAZINE [Concomitant]
     Active Substance: SULFASALAZINE
     Route: 048
  250. TOCILIZUMAB [Concomitant]
     Active Substance: TOCILIZUMAB
     Indication: Rheumatoid arthritis
     Route: 058
  251. TOCILIZUMAB [Concomitant]
     Active Substance: TOCILIZUMAB
     Route: 042
  252. TOCILIZUMAB [Concomitant]
     Active Substance: TOCILIZUMAB
  253. TOCILIZUMAB [Concomitant]
     Active Substance: TOCILIZUMAB
     Route: 005
  254. TOCILIZUMAB [Concomitant]
     Active Substance: TOCILIZUMAB
  255. TOFACITINIB [Concomitant]
     Active Substance: TOFACITINIB
     Indication: Rheumatoid arthritis
  256. TOFACITINIB [Concomitant]
     Active Substance: TOFACITINIB
     Route: 048
  257. TOFACITINIB CITRATE [Concomitant]
     Active Substance: TOFACITINIB CITRATE
     Indication: Rheumatoid arthritis
     Route: 058
  258. TOFACITINIB CITRATE [Concomitant]
     Active Substance: TOFACITINIB CITRATE
     Indication: Psoriatic arthropathy
     Route: 048
  259. TOFACITINIB CITRATE [Concomitant]
     Active Substance: TOFACITINIB CITRATE
     Route: 048
  260. TOFACITINIB CITRATE [Concomitant]
     Active Substance: TOFACITINIB CITRATE
     Route: 048
  261. TOFACITINIB CITRATE [Concomitant]
     Active Substance: TOFACITINIB CITRATE
  262. TOPICORT [Concomitant]
     Active Substance: DESOXIMETASONE
     Indication: Rheumatoid arthritis
     Route: 003
  263. TOPICORT [Concomitant]
     Active Substance: DESOXIMETASONE
     Route: 058
  264. TOPICORT [Concomitant]
     Active Substance: DESOXIMETASONE
     Route: 048
  265. USTEKINUMAB [Concomitant]
     Active Substance: USTEKINUMAB
     Indication: Psoriasis
     Route: 042
  266. USTEKINUMAB [Concomitant]
     Active Substance: USTEKINUMAB
     Route: 042
  267. USTEKINUMAB [Concomitant]
     Active Substance: USTEKINUMAB
     Route: 058
  268. USTEKINUMAB [Concomitant]
     Active Substance: USTEKINUMAB
     Route: 042
  269. USTEKINUMAB [Concomitant]
     Active Substance: USTEKINUMAB
     Route: 042
  270. VITAMIN C [Concomitant]
     Active Substance: ASCORBIC ACID
     Indication: Product used for unknown indication
  271. VITAMIN D3 [Concomitant]
     Active Substance: CHOLECALCIFEROL
     Indication: Product used for unknown indication
  272. DICLOFENAC [Concomitant]
     Active Substance: DICLOFENAC
     Indication: Product used for unknown indication
     Route: 047
  273. DICLOFENAC [Concomitant]
     Active Substance: DICLOFENAC
     Route: 058
  274. DICLOFENAC [Concomitant]
     Active Substance: DICLOFENAC
  275. DICLOFENAC [Concomitant]
     Active Substance: DICLOFENAC
  276. PREDNISONE [Concomitant]
     Active Substance: PREDNISONE
     Indication: Rheumatoid arthritis
     Route: 048
  277. XELJANZ [Concomitant]
     Active Substance: TOFACITINIB CITRATE
     Indication: Rheumatoid arthritis
     Route: 048
  278. XELJANZ [Concomitant]
     Active Substance: TOFACITINIB CITRATE
     Indication: Psoriatic arthropathy
     Route: 048
  279. XELJANZ [Concomitant]
     Active Substance: TOFACITINIB CITRATE
  280. XELJANZ [Concomitant]
     Active Substance: TOFACITINIB CITRATE
  281. XELJANZ [Concomitant]
     Active Substance: TOFACITINIB CITRATE
     Route: 048
  282. XELJANZ [Concomitant]
     Active Substance: TOFACITINIB CITRATE
  283. XELJANZ [Concomitant]
     Active Substance: TOFACITINIB CITRATE
  284. XELJANZ [Concomitant]
     Active Substance: TOFACITINIB CITRATE
  285. XELJANZ [Concomitant]
     Active Substance: TOFACITINIB CITRATE
     Route: 048
  286. XELJANZ [Concomitant]
     Active Substance: TOFACITINIB CITRATE
     Route: 048

REACTIONS (1)
  - Death [Fatal]
